FAERS Safety Report 4430164-5 (Version None)
Quarter: 2004Q3

REPORT INFORMATION
  Report Type: 
  Country: None (occurrence: None)
  Receive Date: 20040816
  Receipt Date: 20040730
  Transmission Date: 20050211
  Serious: Yes (Hospitalization)
  Sender: FDA-Public Use
  Company Number: 2004-BP-02643NB

PATIENT
  Age: 73 Year
  Sex: Female

DRUGS (10)
  1. MICARDIS [Suspect]
     Indication: HYPERTENSION
     Dosage: 20 MG (20 MG) PO
     Route: 048
     Dates: start: 20031202, end: 20040309
  2. FANMIL R (TAD) [Concomitant]
  3. DIASERA L (TAD) [Concomitant]
  4. PIROAN (DIPYRIDAMOLE) (TA) [Concomitant]
  5. EMOLEX (TA) [Concomitant]
  6. NIKORANMART (NICORANDIL) (TA) [Concomitant]
  7. TAKEPRON (LANSOPRAZOLE) (TA) [Concomitant]
  8. PLATIBIT (ALFACALCIDOL) (KA) [Concomitant]
  9. MAAREDGE (PL) [Concomitant]
  10. FENILENE (TA) [Concomitant]

REACTIONS (1)
  - RENAL FAILURE ACUTE [None]
